FAERS Safety Report 5818225-7 (Version None)
Quarter: 2008Q3

REPORT INFORMATION
  Report Type: 
  Country: None (occurrence: None)
  Receive Date: 20080722
  Receipt Date: 20080512
  Transmission Date: 20090109
  Serious: No
  Sender: FDA-Public Use
  Company Number: US-BAYER-200812204BCC

PATIENT
  Age: 86 Year
  Sex: Female
  Weight: 48 kg

DRUGS (6)
  1. ALEVE [Suspect]
     Indication: ARTHRALGIA
     Dosage: TOTAL DAILY DOSE: 440 MG  UNIT DOSE: 220 MG
     Route: 048
     Dates: start: 20080511
  2. FLEX-A-MIN [Concomitant]
  3. CALCIUM [Concomitant]
  4. STOOL SOFTENER [Concomitant]
  5. HIGHLANDS [Concomitant]
  6. METHOCARBAMOL [Concomitant]

REACTIONS (1)
  - DIARRHOEA [None]
